FAERS Safety Report 11188852 (Version 1)
Quarter: 2015Q2

REPORT INFORMATION
  Report Type: Spontaneous
  Country: US (occurrence: None)
  Receive Date: 20150612
  Receipt Date: 20150612
  Transmission Date: 20150821
  Serious: Yes (Hospitalization)
  Sender: FDA-Public Use
  Company Number: None

PATIENT
  Age: 34 Year
  Sex: Female

DRUGS (1)
  1. AMPHETAMINE RESIN COMPLEX [Suspect]
     Active Substance: AMPHETAMINE ADIPATE\DEXTROAMPHETAMINE
     Indication: NARCOLEPSY
     Route: 048
     Dates: start: 20150120, end: 20150514

REACTIONS (1)
  - Substance-induced psychotic disorder [None]

NARRATIVE: CASE EVENT DATE: 20150528
